FAERS Safety Report 5644960-X (Version None)
Quarter: 2008Q1

REPORT INFORMATION
  Report Type: 
  Country: None (occurrence: None)
  Receive Date: 20080229
  Receipt Date: 20071127
  Transmission Date: 20080703
  Serious: No
  Sender: FDA-Public Use
  Company Number: A0696055A

PATIENT
  Age: 77 Year
  Sex: Female

DRUGS (13)
  1. VALTREX [Suspect]
     Dosage: 1G THREE TIMES PER DAY
     Route: 048
     Dates: start: 20071124, end: 20071125
  2. HYDROXYCHLOROQUINE SULFATE [Concomitant]
  3. FEXOFENADINE [Concomitant]
  4. STALEVO 100 [Concomitant]
  5. NEURONTIN [Concomitant]
  6. NITROGLYCERIN [Concomitant]
  7. NIASPAN [Concomitant]
  8. LOPRESSOR [Concomitant]
  9. ZETIA [Concomitant]
  10. PLAVIX [Concomitant]
  11. PREVACID [Concomitant]
  12. LISINOPRIL [Concomitant]
  13. ASPIRIN [Concomitant]

REACTIONS (3)
  - ABDOMINAL PAIN UPPER [None]
  - DIARRHOEA [None]
  - VOMITING [None]
